FAERS Safety Report 4867665-1 (Version None)
Quarter: 2005Q4

REPORT INFORMATION
  Report Type: 
  Country: None (occurrence: None)
  Receive Date: 20051228
  Receipt Date: 20051220
  Transmission Date: 20060501
  Serious: Yes (Hospitalization)
  Sender: FDA-Public Use
  Company Number: FR-BRISTOL-MYERS SQUIBB COMPANY-13225131

PATIENT
  Age: 75 Year
  Sex: Male

DRUGS (9)
  1. COUMADIN [Suspect]
     Route: 048
  2. VASTEN TABS 40 MG [Interacting]
     Indication: DYSLIPIDAEMIA
     Route: 048
  3. KARDEGIC [Interacting]
     Dosage: POWDER
     Route: 048
     Dates: end: 20051110
  4. ALDACTONE [Concomitant]
     Route: 048
  5. CARDENSIEL [Concomitant]
     Route: 048
  6. LASILIX [Concomitant]
     Route: 048
  7. STILNOX [Concomitant]
     Route: 048
  8. VASTAREL [Concomitant]
     Route: 048
  9. ZESTRIL [Concomitant]
     Route: 048

REACTIONS (4)
  - ANAEMIA [None]
  - DRUG INTERACTION [None]
  - GASTRIC HAEMORRHAGE [None]
  - MELAENA [None]
